FAERS Safety Report 4637312-2 (Version None)
Quarter: 2005Q2

REPORT INFORMATION
  Report Type: 
  Country: None (occurrence: None)
  Receive Date: 20050328
  Receipt Date: 20041124
  Transmission Date: 20051028
  Serious: No
  Sender: FDA-Public Use
  Company Number: USA041184623

PATIENT
  Age: 33 Year
  Sex: Female

DRUGS (2)
  1. STRATTERA [Suspect]
     Dosage: 160 MG
     Dates: start: 20041111
  2. METFORMIN [Concomitant]

REACTIONS (4)
  - ACCIDENTAL OVERDOSE [None]
  - MEDICATION ERROR [None]
  - PRESCRIBED OVERDOSE [None]
  - TINNITUS [None]
